FAERS Safety Report 25416385 (Version 1)
Quarter: 2025Q2

REPORT INFORMATION
  Report Type: Spontaneous
  Country: US (occurrence: US)
  Receive Date: 20250610
  Receipt Date: 20250610
  Transmission Date: 20250717
  Serious: Yes (Hospitalization, Other)
  Sender: CSL BEHRING
  Company Number: US-BEH-2025208703

PATIENT
  Sex: Female

DRUGS (10)
  1. HAEGARDA [Suspect]
     Active Substance: HUMAN C1-ESTERASE INHIBITOR
     Indication: Hereditary angioedema
     Dosage: 7500 IU, BIW
     Route: 058
     Dates: start: 202502
  2. HAEGARDA [Suspect]
     Active Substance: HUMAN C1-ESTERASE INHIBITOR
     Indication: Prophylaxis
  3. SOLU-MEDROL [Concomitant]
     Active Substance: METHYLPREDNISOLONE SODIUM SUCCINATE
     Route: 048
  4. XOLAIR [Concomitant]
     Active Substance: OMALIZUMAB
  5. XOLAIR [Concomitant]
     Active Substance: OMALIZUMAB
  6. FAMOTIDINE [Concomitant]
     Active Substance: FAMOTIDINE
  7. DIPHENHYDRAMINE [Concomitant]
     Active Substance: DIPHENHYDRAMINE
  8. LACTATED RINGERS SOLUTION [Concomitant]
     Active Substance: CALCIUM CHLORIDE\POTASSIUM CHLORIDE\SODIUM CHLORIDE\SODIUM LACTATE
  9. KALBITOR [Concomitant]
     Active Substance: ECALLANTIDE
  10. HAEGARDA [Concomitant]
     Active Substance: HUMAN C1-ESTERASE INHIBITOR
     Route: 065

REACTIONS (3)
  - Hereditary angioedema [Recovered/Resolved]
  - Surgery [Unknown]
  - Hereditary angioedema [Unknown]
